FAERS Safety Report 8135016-5 (Version None)
Quarter: 2012Q1

REPORT INFORMATION
  Report Type: 
  Country: None (occurrence: None)
  Receive Date: 20120214
  Receipt Date: 20120213
  Transmission Date: 20120608
  Serious: Yes (Other)
  Sender: FDA-Public Use
  Company Number: US-BAYER-2012-014274

PATIENT
  Sex: Female

DRUGS (1)
  1. MIRENA [Suspect]
     Indication: PRODUCT USED FOR UNKNOWN INDICATION
     Dosage: 20 ?G/D, UNK
     Route: 015
     Dates: start: 20090101

REACTIONS (5)
  - NERVOUSNESS [None]
  - UNEVALUABLE EVENT [None]
  - BACK PAIN [None]
  - VAGINAL HAEMORRHAGE [None]
  - ANXIETY [None]
